FAERS Safety Report 9537644 (Version 2)
Quarter: 2013Q3

REPORT INFORMATION
  Report Type: Spontaneous
  Country: PL (occurrence: PL)
  Receive Date: 20130919
  Receipt Date: 20130919
  Transmission Date: 20140515
  Serious: Yes (Other)
  Sender: FDA-Public Use
  Company Number: PL-JNJFOC-20130614024

PATIENT
  Sex: Male

DRUGS (5)
  1. ABIRATERONE ACETATE [Suspect]
     Indication: PROSTATE CANCER
     Route: 048
     Dates: start: 201208, end: 20130201
  2. PREDNISONE [Concomitant]
     Indication: PRODUCT USED FOR UNKNOWN INDICATION
     Route: 065
  3. MEGESTROL ACETATE [Concomitant]
     Route: 065
  4. POTASSIUM SUPPLEMENTS [Concomitant]
     Route: 048
  5. BUPRENORPHINE [Concomitant]
     Indication: PAIN
     Route: 065

REACTIONS (6)
  - Prostate cancer [Unknown]
  - Metastases to bone [Unknown]
  - Hepatic enzyme increased [Unknown]
  - Hypokalaemia [Unknown]
  - Decreased appetite [Recovering/Resolving]
  - Spinal pain [Recovering/Resolving]
